FAERS Safety Report 26159989 (Version 2)
Quarter: 2025Q4

REPORT INFORMATION
  Report Type: Spontaneous
  Country: IR (occurrence: IR)
  Receive Date: 20251216
  Receipt Date: 20251226
  Transmission Date: 20260118
  Serious: Yes (Other)
  Sender: ALKEM
  Company Number: IR-ALKEM LABORATORIES LIMITED-IR-ALKEM-2025-13361

PATIENT
  Age: 4 Year
  Sex: Female

DRUGS (2)
  1. TRIAMCINOLONE ACETONIDE [Suspect]
     Active Substance: TRIAMCINOLONE ACETONIDE
     Indication: Vitiligo
     Dosage: 20 MILLIGRAM
     Route: 030
  2. PIMECROLIMUS [Concomitant]
     Active Substance: PIMECROLIMUS
     Indication: Vitiligo
     Dosage: UNK
     Route: 065

REACTIONS (1)
  - Embolia cutis medicamentosa [Recovering/Resolving]
